FAERS Safety Report 24249293 (Version 2)
Quarter: 2024Q3

REPORT INFORMATION
  Report Type: Report from Study
  Country: US (occurrence: US)
  Receive Date: 20240826
  Receipt Date: 20240912
  Transmission Date: 20241016
  Serious: Yes (Other)
  Sender: SUNOVION
  Company Number: US-SUMITOMO PHARMA SWITZERLAND GMBH-2024SPA000590

PATIENT

DRUGS (2)
  1. ORGOVYX [Suspect]
     Active Substance: RELUGOLIX
     Indication: Prostate cancer
     Dosage: 360 MG
     Route: 048
     Dates: start: 20240526, end: 20240526
  2. ORGOVYX [Suspect]
     Active Substance: RELUGOLIX
     Dosage: 120 MG, QD
     Route: 048
     Dates: start: 20240527

REACTIONS (7)
  - Dementia [Unknown]
  - Dyspnoea [Unknown]
  - Prostatic specific antigen increased [Unknown]
  - Pollakiuria [Unknown]
  - Somnolence [Unknown]
  - Asthenia [Unknown]
  - Headache [Unknown]
